FAERS Safety Report 5468838-X (Version None)
Quarter: 2007Q3

REPORT INFORMATION
  Report Type: 
  Country: None (occurrence: None)
  Receive Date: 20070926
  Receipt Date: 20070914
  Transmission Date: 20080115
  Serious: Yes (Hospitalization, Other)
  Sender: FDA-Public Use
  Company Number: US-PFIZER INC-2007068637

PATIENT
  Sex: Female
  Weight: 88.9 kg

DRUGS (11)
  1. CHANTIX [Suspect]
     Indication: SMOKING CESSATION THERAPY
  2. ZITHROMAX [Suspect]
  3. FLUCONAZOLE [Suspect]
  4. EFFEXOR [Concomitant]
  5. AMITRIPTYLINE HCL [Concomitant]
  6. BUSPAR [Concomitant]
  7. CLARITIN [Concomitant]
  8. LIPITOR [Concomitant]
  9. NYSTATIN [Concomitant]
  10. EXCEDRIN (MIGRAINE) [Concomitant]
     Indication: MIGRAINE
  11. PROVERA [Concomitant]

REACTIONS (24)
  - CANDIDIASIS [None]
  - CHOKING [None]
  - CHRONIC OBSTRUCTIVE PULMONARY DISEASE [None]
  - DRUG INEFFECTIVE [None]
  - DYSPHAGIA [None]
  - EAR INFECTION [None]
  - FALL [None]
  - FIBROMYALGIA [None]
  - GLOSSODYNIA [None]
  - HYPERSENSITIVITY [None]
  - JOINT INJURY [None]
  - LACRIMATION INCREASED [None]
  - LIMB INJURY [None]
  - MALAISE [None]
  - MOVEMENT DISORDER [None]
  - MUSCLE SPASMS [None]
  - PAIN [None]
  - PHARYNGOLARYNGEAL PAIN [None]
  - RESPIRATORY DISORDER [None]
  - SCIATICA [None]
  - SLEEP APNOEA SYNDROME [None]
  - STRESS [None]
  - TOOTHACHE [None]
  - UPPER RESPIRATORY TRACT INFECTION [None]
